FAERS Safety Report 11346708 (Version 1)
Quarter: 2015Q3

REPORT INFORMATION
  Report Type: Spontaneous
  Country: US (occurrence: US)
  Receive Date: 20150803
  Receipt Date: 20150803
  Transmission Date: 20151125
  Serious: No
  Sender: FDA-Public Use
  Company Number: US-ELI_LILLY_AND_COMPANY-US201011006476

PATIENT
  Age: 55 Year
  Sex: Female

DRUGS (2)
  1. STRATTERA [Suspect]
     Active Substance: ATOMOXETINE HYDROCHLORIDE
     Indication: ATTENTION DEFICIT/HYPERACTIVITY DISORDER
     Dosage: 25 MG, UNK
     Dates: end: 20101120
  2. XANAX [Concomitant]
     Active Substance: ALPRAZOLAM
     Dosage: 1 D/F, AS NEEDED

REACTIONS (6)
  - Feeling abnormal [Unknown]
  - Medication error [Unknown]
  - Feeling jittery [Unknown]
  - Intentional product misuse [Unknown]
  - Disturbance in attention [Unknown]
  - Asthenia [Unknown]
